FAERS Safety Report 10243586 (Version 1)
Quarter: 2014Q2

REPORT INFORMATION
  Report Type: Spontaneous
  Country: US (occurrence: US)
  Receive Date: 20140618
  Receipt Date: 20140618
  Transmission Date: 20141212
  Serious: No
  Sender: FDA-Public Use
  Company Number: US-PFIZER INC-2014164332

PATIENT
  Age: 60 Year
  Sex: Male

DRUGS (3)
  1. VIAGRA [Suspect]
     Indication: ERECTILE DYSFUNCTION
     Dosage: UNK
     Route: 048
     Dates: start: 201404
  2. VIAGRA [Suspect]
     Dosage: SPLITTING THE 100MG TABLET INTO HALF
     Dates: start: 201404
  3. VIAGRA [Suspect]
     Dosage: 100 MG, UNK
     Dates: start: 2014

REACTIONS (3)
  - Fatigue [Unknown]
  - Drug ineffective [Unknown]
  - Drug effect incomplete [Unknown]
